FAERS Safety Report 5999701-3 (Version None)
Quarter: 2008Q4

REPORT INFORMATION
  Report Type: 
  Country: None (occurrence: None)
  Receive Date: 20081211
  Receipt Date: 20081211
  Transmission Date: 20090506
  Serious: Yes (Other)
  Sender: FDA-Public Use
  Company Number: None

PATIENT
  Age: 63 Year
  Sex: Female
  Weight: 54.4316 kg

DRUGS (1)
  1. DOXEPIN HCL [Suspect]
     Indication: SLEEP DISORDER
     Dosage: TWO CAPSULES DAILY AT BEDTIME PO
     Route: 048

REACTIONS (3)
  - DRUG EFFECT INCREASED [None]
  - NEUROTRANSMITTER LEVEL ALTERED [None]
  - THERAPEUTIC RESPONSE UNEXPECTED WITH DRUG SUBSTITUTION [None]
